FAERS Safety Report 5151447-X (Version None)
Quarter: 2006Q4

REPORT INFORMATION
  Report Type: 
  Country: None (occurrence: None)
  Receive Date: 20061115
  Receipt Date: 20061110
  Transmission Date: 20070319
  Serious: Yes (Death)
  Sender: FDA-Public Use
  Company Number: 2006AC02092

PATIENT
  Age: 37 Year

DRUGS (3)
  1. QUETIAPINE FUMARATE [Suspect]
     Dosage: ROUTE - INGESTION/UNKNOWN
  2. CLONAZEPAM [Suspect]
     Dosage: ROUTE - INGESTION/UNKNOWN
  3. COCAINE [Suspect]
     Dosage: ROUTE - INGESTION/UNKNOWN

REACTIONS (1)
  - COMPLETED SUICIDE [None]
